FAERS Safety Report 4533480-1 (Version None)
Quarter: 2004Q4

REPORT INFORMATION
  Report Type: 
  Country: None (occurrence: None)
  Receive Date: 20041207
  Receipt Date: 20031027
  Transmission Date: 20050328
  Serious: Yes (Hospitalization)
  Sender: FDA-Public Use
  Company Number: 700328

PATIENT
  Sex: Female
  Weight: 73.4827 kg

DRUGS (15)
  1. DIANEAL [Suspect]
     Indication: PERITONEAL DIALYSIS
     Dates: start: 20010904, end: 20031029
  2. COZAAR [Concomitant]
  3. ATENOLOL [Concomitant]
  4. ZOCOR [Concomitant]
  5. K-DUR [Concomitant]
  6. EPOGEN [Concomitant]
  7. TRIPSIPAN [Concomitant]
  8. FOLIC ACID [Concomitant]
  9. RENAGEL [Concomitant]
  10. ZYNTEC D [Concomitant]
  11. LEXAPRO [Concomitant]
  12. HUMULIN R-PER SLIDING SCALE [Concomitant]
  13. FOSAMAX [Concomitant]
  14. PHENERGAN [Concomitant]
  15. CALCITRIOL [Concomitant]

REACTIONS (2)
  - ABDOMINAL PAIN [None]
  - PERITONITIS [None]
